FAERS Safety Report 9752226 (Version 1)
Quarter: 2013Q4

REPORT INFORMATION
  Report Type: Spontaneous
  Country: US (occurrence: None)
  Receive Date: 20131212
  Receipt Date: 20131212
  Transmission Date: 20140711
  Serious: Yes (Other)
  Sender: FDA-Public Use
  Company Number: None

PATIENT
  Age: 86 None
  Sex: Male

DRUGS (8)
  1. PEPCID [Suspect]
     Indication: PROPHYLAXIS AGAINST GASTROINTESTINAL ULCER
     Dosage: 20 MG, 1 TABLET TWICE A DAY, BOTH, BY MOUTH
     Route: 048
     Dates: start: 20131101
  2. LEVETORACTAM [Concomitant]
  3. METOPROLOL [Concomitant]
  4. DIOVAN [Concomitant]
  5. COUMODIN [Concomitant]
  6. DOXAZOSIN [Concomitant]
  7. NEXIUM [Concomitant]
  8. AMOXICILLON FOR DENTIST [Concomitant]

REACTIONS (6)
  - Myocardial infarction [None]
  - Heart rate increased [None]
  - Dyspnoea [None]
  - Dizziness [None]
  - Hypoaesthesia [None]
  - Balance disorder [None]
